FAERS Safety Report 16175911 (Version 2)
Quarter: 2019Q2

REPORT INFORMATION
  Report Type: Spontaneous
  Country: US (occurrence: US)
  Receive Date: 20190409
  Receipt Date: 20190423
  Transmission Date: 20190711
  Serious: No
  Sender: FDA-Public Use
  Company Number: US-CELGENEUS-USA-20190402327

PATIENT
  Age: 44 Year
  Sex: Female

DRUGS (1)
  1. OTEZLA [Suspect]
     Active Substance: APREMILAST
     Indication: PRODUCT USED FOR UNKNOWN INDICATION
     Dosage: 60 MILLIGRAM
     Route: 048
     Dates: start: 201812

REACTIONS (5)
  - Rhinorrhoea [Unknown]
  - Abdominal pain upper [Unknown]
  - Vomiting [Unknown]
  - Nasal congestion [Unknown]
  - Nausea [Unknown]

NARRATIVE: CASE EVENT DATE: 2019
